FAERS Safety Report 21706341 (Version 1)
Quarter: 2022Q4

REPORT INFORMATION
  Report Type: Spontaneous
  Country: JP (occurrence: JP)
  Receive Date: 20221209
  Receipt Date: 20221209
  Transmission Date: 20230112
  Serious: Yes (Death)
  Sender: FDA-Public Use
  Company Number: JP-shionogi-202213465_SYP_P_1

PATIENT

DRUGS (2)
  1. SYMPROIC [Suspect]
     Active Substance: NALDEMEDINE
     Indication: Product used for unknown indication
     Dosage: 0.2 MG, QD
     Route: 065
  2. OXYCODONE [Concomitant]
     Active Substance: OXYCODONE
     Indication: Cancer pain
     Dosage: 200 MG, QD
     Route: 058

REACTIONS (1)
  - Discomfort [Fatal]
